FAERS Safety Report 22239108 (Version 1)
Quarter: 2023Q2

REPORT INFORMATION
  Report Type: Report from Study
  Country: US (occurrence: US)
  Receive Date: 20230421
  Receipt Date: 20230421
  Transmission Date: 20230722
  Serious: No
  Sender: FDA-Public Use
  Company Number: US-BIOVITRUM-2023-US-006952

PATIENT
  Age: 0 Year
  Sex: Male

DRUGS (2)
  1. SYNAGIS [Suspect]
     Active Substance: PALIVIZUMAB
     Indication: Antiviral prophylaxis
     Dosage: 100MG/1ML, MONTHLY
     Route: 030
  2. ECK GAS RELIEF EXTRA STRE [Concomitant]
     Indication: Product used for unknown indication
     Route: 065

REACTIONS (6)
  - Cough [Unknown]
  - Rhinorrhoea [Unknown]
  - Respiratory syncytial virus infection [Unknown]
  - Wheezing [Unknown]
  - Pyrexia [Unknown]
  - Treatment noncompliance [Unknown]
